FAERS Safety Report 5463747-4 (Version None)
Quarter: 2007Q3

REPORT INFORMATION
  Report Type: 
  Country: None (occurrence: None)
  Receive Date: 20070920
  Receipt Date: 20070913
  Transmission Date: 20080115
  Serious: No
  Sender: FDA-Public Use
  Company Number: US-BOEHRINGER INGELHEIM PHARMACEUTICALS, INC.-2006-BP-01069BP

PATIENT
  Sex: Female

DRUGS (14)
  1. SPIRIVA [Suspect]
     Indication: CHRONIC OBSTRUCTIVE PULMONARY DISEASE
     Route: 055
     Dates: start: 20051201, end: 20060125
  2. SPIRIVA [Suspect]
     Indication: ASTHMA
  3. BUDESONIDE [Concomitant]
     Indication: ASTHMA
  4. BUDESONIDE [Concomitant]
     Indication: CHRONIC OBSTRUCTIVE PULMONARY DISEASE
  5. FORMOTEROL FUMARATE [Concomitant]
     Indication: ASTHMA
  6. FORMOTEROL FUMARATE [Concomitant]
     Indication: CHRONIC OBSTRUCTIVE PULMONARY DISEASE
  7. ALBUTEROL [Concomitant]
     Indication: ASTHMA
  8. ALBUTEROL [Concomitant]
     Indication: CHRONIC OBSTRUCTIVE PULMONARY DISEASE
  9. NORVASC [Concomitant]
     Indication: HYPERTENSION
  10. DIOVAN HCT [Concomitant]
     Indication: HYPERTENSION
  11. LORATADINE [Concomitant]
     Indication: MULTIPLE ALLERGIES
  12. SINGULAIR [Concomitant]
     Indication: ASTHMA
  13. SINGULAIR [Concomitant]
     Indication: CHRONIC OBSTRUCTIVE PULMONARY DISEASE
  14. ZOLOFT [Concomitant]
     Indication: DEPRESSION

REACTIONS (3)
  - BACK PAIN [None]
  - CHEST PAIN [None]
  - DYSPNOEA [None]
